FAERS Safety Report 7980021-2 (Version None)
Quarter: 2011Q4

REPORT INFORMATION
  Report Type: 
  Country: None (occurrence: None)
  Receive Date: 20111214
  Receipt Date: 20111212
  Transmission Date: 20120403
  Serious: Yes (Death, Other)
  Sender: FDA-Public Use
  Company Number: PHEH2009US19086

PATIENT
  Sex: Female

DRUGS (16)
  1. AREDIA [Suspect]
     Indication: BREAST CANCER METASTATIC
  2. MORPHINE [Concomitant]
  3. ZANTAC [Concomitant]
     Dosage: 150 MG, BID
     Route: 048
  4. PREDNISONE TAB [Concomitant]
     Dosage: 5 MG, BID
     Route: 048
  5. FOLIC ACID [Concomitant]
     Dosage: 1 DF, BID
     Route: 048
  6. OXYCONTIN [Concomitant]
     Dosage: 20 MG, BID
     Route: 048
  7. NEURONTIN [Concomitant]
  8. ATIVAN [Concomitant]
     Dosage: 1 MG, BID
  9. CATAPRES                                /USA/ [Concomitant]
     Dosage: 0.1 MG, QW
  10. ZOMETA [Suspect]
     Indication: BREAST CANCER METASTATIC
     Route: 042
  11. ROXICET [Concomitant]
  12. METHOTREXATE [Concomitant]
  13. FLAGYL [Concomitant]
  14. ACTONEL [Concomitant]
     Dosage: 1 DF, QW
     Route: 048
  15. NEXIUM [Concomitant]
     Dosage: 1 DF, QD
     Route: 048
  16. CLINDAMYCIN [Concomitant]
     Dosage: 300 MG, TID
     Route: 048

REACTIONS (39)
  - SWELLING FACE [None]
  - NEOPLASM MALIGNANT [None]
  - OSTEOPENIA [None]
  - PAIN IN JAW [None]
  - ANXIETY [None]
  - OEDEMA PERIPHERAL [None]
  - NEOPLASM PROGRESSION [None]
  - ARTHRITIS [None]
  - OSTEOMYELITIS [None]
  - PAIN [None]
  - IMPAIRED WORK ABILITY [None]
  - DYSPNOEA [None]
  - INCONTINENCE [None]
  - DEATH [None]
  - DISABILITY [None]
  - ANHEDONIA [None]
  - HAEMORRHOIDS [None]
  - CONSTIPATION [None]
  - TOOTHACHE [None]
  - COMPRESSION FRACTURE [None]
  - HYPERTENSION [None]
  - NECK PAIN [None]
  - OSTEONECROSIS OF JAW [None]
  - WEIGHT FLUCTUATION [None]
  - GASTROOESOPHAGEAL REFLUX DISEASE [None]
  - THERMAL BURN [None]
  - OSTEOARTHRITIS [None]
  - PATHOLOGICAL FRACTURE [None]
  - NEUROPATHY PERIPHERAL [None]
  - APPETITE DISORDER [None]
  - DYSPEPSIA [None]
  - JAW FRACTURE [None]
  - VISION BLURRED [None]
  - RHEUMATOID ARTHRITIS [None]
  - SINUS TACHYCARDIA [None]
  - FACET JOINT SYNDROME [None]
  - SCOLIOSIS [None]
  - DEFORMITY [None]
  - ABDOMINAL PAIN [None]
